FAERS Safety Report 12288351 (Version 1)
Quarter: 2016Q2

REPORT INFORMATION
  Report Type: Report from Study
  Country: BR (occurrence: BR)
  Receive Date: 20160420
  Receipt Date: 20160420
  Transmission Date: 20160815
  Serious: Yes (Disabling)
  Sender: FDA-Public Use
  Company Number: BR-ABBVIE-16P-020-1609474-00

PATIENT
  Age: 76 Year
  Sex: Female
  Weight: 55 kg

DRUGS (5)
  1. OMEPRAZOLE. [Concomitant]
     Active Substance: OMEPRAZOLE
     Indication: GASTRIC DISORDER
     Route: 048
  2. LEVAMLODIPINE BESILATE [Concomitant]
     Active Substance: LEVAMLODIPINE BESYLATE
     Indication: BLOOD PRESSURE MEASUREMENT
     Route: 048
     Dates: start: 2015
  3. DAFLON [Concomitant]
     Active Substance: DIOSMIN\HESPERIDIN
     Indication: VARICOSE VEIN
     Route: 048
     Dates: start: 20160411
  4. GERIATON [Concomitant]
     Indication: ASTHENIA
     Route: 048
     Dates: start: 20160411
  5. SYNTHROID [Suspect]
     Active Substance: LEVOTHYROXINE SODIUM
     Indication: PRODUCT USED FOR UNKNOWN INDICATION
     Dosage: DAILY DOSE:75 MCG; IN THE MORNING
     Route: 048
     Dates: start: 2002

REACTIONS (3)
  - Sudden hearing loss [Not Recovered/Not Resolved]
  - Allergic cough [Recovered/Resolved]
  - Influenza [Recovered/Resolved]

NARRATIVE: CASE EVENT DATE: 201603
